FAERS Safety Report 4954438-4 (Version None)
Quarter: 2006Q1

REPORT INFORMATION
  Report Type: 
  Country: None (occurrence: None)
  Receive Date: 20060322
  Receipt Date: 20060307
  Transmission Date: 20060701
  Serious: Yes (Other)
  Sender: FDA-Public Use
  Company Number: BMRN-2006-005

PATIENT
  Age: 67 Year
  Sex: Female

DRUGS (1)
  1. ORAPRED [Suspect]
     Indication: PARANEOPLASTIC SYNDROME
     Dosage: 60 MG, QD, ORAL
     Route: 048

REACTIONS (15)
  - B-CELL LYMPHOMA [None]
  - BEDRIDDEN [None]
  - BLOOD PRESSURE DECREASED [None]
  - DEHYDRATION [None]
  - DILATATION VENTRICULAR [None]
  - DYSPNOEA EXERTIONAL [None]
  - EMBOLISM VENOUS [None]
  - GENERAL PHYSICAL HEALTH DETERIORATION [None]
  - MOBILITY DECREASED [None]
  - MOVEMENT DISORDER [None]
  - OXYGEN SATURATION DECREASED [None]
  - PULMONARY EMBOLISM [None]
  - RESPIRATORY DISTRESS [None]
  - TACHYCARDIA [None]
  - URINE OUTPUT DECREASED [None]
